FAERS Safety Report 8807565 (Version 1)
Quarter: 2012Q4

REPORT INFORMATION
  Report Type: 
  Country: FR (occurrence: FR)
  Receive Date: 20120925
  Receipt Date: 20120925
  Transmission Date: 20130627
  Serious: Yes (Hospitalization)
  Sender: FDA-Public Use
  Company Number: FR-PFIZER INC-2012236121

PATIENT
  Age: 70 Year
  Sex: Female

DRUGS (3)
  1. CORDARONE [Suspect]
     Dosage: UNK
     Route: 048
     Dates: start: 201204
  2. COVERSYL [Concomitant]
  3. CRESTOR [Concomitant]

REACTIONS (1)
  - Pericarditis [Unknown]
